FAERS Safety Report 4793842-4 (Version None)
Quarter: 2005Q4

REPORT INFORMATION
  Report Type: 
  Country: None (occurrence: None)
  Receive Date: 20051006
  Receipt Date: 20051006
  Transmission Date: 20060501
  Serious: Yes (Hospitalization)
  Sender: FDA-Public Use
  Company Number: None

PATIENT
  Age: 52 Year
  Sex: Male
  Weight: 70 kg

DRUGS (9)
  1. AMIODARONE 200 MG SANDOZ [Suspect]
     Indication: CORONARY ARTERY SURGERY
     Dosage: 200 MG DAILY PO [RESTARTED: 1ST DOSE]
     Route: 048
  2. AMIODARONE 200 MG SANDOZ [Suspect]
     Indication: PROPHYLAXIS
     Dosage: 200 MG DAILY PO [RESTARTED: 1ST DOSE]
     Route: 048
  3. ISOSORBIDE DINITRATE [Suspect]
     Indication: ANGINA PECTORIS
     Dosage: 10 MG TID PO [RESTARTED: 1ST DOSE]
     Route: 048
  4. VIT C [Concomitant]
  5. FESO4 [Concomitant]
  6. ASPIRIN [Concomitant]
  7. PLAVIX [Concomitant]
  8. ISDN [Concomitant]
  9. OMEPRAZOLE [Concomitant]

REACTIONS (4)
  - DIZZINESS [None]
  - HYPOTENSION [None]
  - LOSS OF CONSCIOUSNESS [None]
  - SLUGGISHNESS [None]
